FAERS Safety Report 15425242 (Version 2)
Quarter: 2018Q4

REPORT INFORMATION
  Report Type: Spontaneous
  Country: US (occurrence: US)
  Receive Date: 20180925
  Receipt Date: 20181001
  Transmission Date: 20190204
  Serious: Yes (Other)
  Sender: FDA-Public Use
  Company Number: US-PFIZER INC-2018381725

PATIENT
  Age: 32 Year
  Sex: Male

DRUGS (10)
  1. PHENYTOIN. [Suspect]
     Active Substance: PHENYTOIN
     Indication: BASILAR ARTERY ANEURYSM
     Dosage: 500 MG, DAILY
     Dates: start: 198203, end: 1983
  2. PHENYTOIN. [Suspect]
     Active Substance: PHENYTOIN
     Indication: PROPHYLAXIS
  3. PHENOBARBITAL. [Concomitant]
     Active Substance: PHENOBARBITAL
     Indication: BASILAR ARTERY ANEURYSM
     Dosage: UNK
     Dates: start: 198202, end: 1982
  4. URECHOLINE [Concomitant]
     Active Substance: BETHANECHOL CHLORIDE
     Indication: BASILAR ARTERY ANEURYSM
     Dosage: UNK
     Dates: start: 198203
  5. DEXAMETHASONE. [Concomitant]
     Active Substance: DEXAMETHASONE
     Indication: BASILAR ARTERY ANEURYSM
     Dosage: UNK
     Dates: start: 198202
  6. PHENOBARBITAL. [Concomitant]
     Active Substance: PHENOBARBITAL
     Indication: PROPHYLAXIS
  7. ISONIAZID. [Concomitant]
     Active Substance: ISONIAZID
     Indication: BASILAR ARTERY ANEURYSM
     Dosage: UNK
     Dates: start: 198203
  8. PHENYTOIN. [Suspect]
     Active Substance: PHENYTOIN
     Indication: RUPTURED CEREBRAL ANEURYSM
     Dosage: 300 MG, DAILY
     Dates: start: 198202, end: 198203
  9. DEXAMETHASONE. [Concomitant]
     Active Substance: DEXAMETHASONE
     Indication: PROPHYLAXIS
  10. CIMETIDINE [Concomitant]
     Active Substance: CIMETIDINE
     Indication: BASILAR ARTERY ANEURYSM
     Dosage: UNK
     Dates: start: 198203

REACTIONS (3)
  - Aplasia pure red cell [Recovered/Resolved]
  - Product use in unapproved indication [Unknown]
  - Drug level below therapeutic [Unknown]

NARRATIVE: CASE EVENT DATE: 198202
